FAERS Safety Report 23216810 (Version 1)
Quarter: 2023Q4

REPORT INFORMATION
  Report Type: Spontaneous
  Country: US (occurrence: US)
  Receive Date: 20231122
  Receipt Date: 20231122
  Transmission Date: 20240109
  Serious: No
  Sender: FDA-Public Use
  Company Number: US-Accord-387724

PATIENT
  Sex: Male
  Weight: 99.79 kg

DRUGS (1)
  1. METHYLPHENIDATE HYDROCHLORIDE [Suspect]
     Active Substance: METHYLPHENIDATE HYDROCHLORIDE
     Indication: Attention deficit hyperactivity disorder
     Dosage: STRENGTH: 10MG BY MOUTH TWICE DAILY,

REACTIONS (2)
  - Drug ineffective [Unknown]
  - Product substitution issue [Unknown]
